FAERS Safety Report 24872225 (Version 6)
Quarter: 2025Q2

REPORT INFORMATION
  Report Type: Spontaneous
  Country: US (occurrence: US)
  Receive Date: 20250122
  Receipt Date: 20250527
  Transmission Date: 20250716
  Serious: Yes (Hospitalization)
  Sender: SUNOVION
  Company Number: US-SMPA-2025SPA000446

PATIENT

DRUGS (10)
  1. ORGOVYX [Suspect]
     Active Substance: RELUGOLIX
     Indication: Prostate cancer
     Dosage: 120 MG, QD
     Route: 048
     Dates: start: 202311
  2. CARBIDOPA AND LEVODOPA [Concomitant]
     Active Substance: CARBIDOPA\LEVODOPA
     Route: 048
  3. ELIQUIS [Concomitant]
     Active Substance: APIXABAN
     Route: 048
  4. IBUPROFEN [Concomitant]
     Active Substance: IBUPROFEN
     Route: 048
  5. METOPROLOL SUCCINATE [Concomitant]
     Active Substance: METOPROLOL SUCCINATE
     Route: 048
  6. OMEPRAZOLE [Concomitant]
     Active Substance: OMEPRAZOLE
     Route: 048
  7. PRAMIPEXOLE [Concomitant]
     Active Substance: PRAMIPEXOLE
     Route: 065
  8. VITAMIN B12 [Concomitant]
     Active Substance: CYANOCOBALAMIN
     Route: 048
  9. XTANDI [Concomitant]
     Active Substance: ENZALUTAMIDE
     Route: 065
  10. SILDENAFIL [Concomitant]
     Active Substance: SILDENAFIL
     Route: 065

REACTIONS (5)
  - Renal disorder [Unknown]
  - Blood pressure abnormal [Unknown]
  - Pain in extremity [Unknown]
  - Product use issue [Unknown]
  - Incorrect dose administered [Unknown]
